FAERS Safety Report 5061410-5 (Version None)
Quarter: 2006Q3

REPORT INFORMATION
  Report Type: 
  Country: None (occurrence: None)
  Receive Date: 20060725
  Receipt Date: 20060516
  Transmission Date: 20061208
  Serious: Yes (Hospitalization)
  Sender: FDA-Public Use
  Company Number: AU-BOEHRINGER INGELHEIM PHARMACEUTICALS, INC.-2006-BP-05470AU

PATIENT

DRUGS (1)
  1. MICARDIS [Suspect]

REACTIONS (1)
  - CEREBROVASCULAR ACCIDENT [None]
